FAERS Safety Report 9785473 (Version 4)
Quarter: 2016Q1

REPORT INFORMATION
  Report Type: Report from Study
  Country: TR (occurrence: TR)
  Receive Date: 20131223
  Receipt Date: 20160104
  Transmission Date: 20160526
  Serious: Yes (Death, Hospitalization, Other)
  Sender: FDA-Public Use
  Company Number: TR-ABBVIE-13P-161-1062691-00

PATIENT
  Age: 79 Year
  Weight: 75 kg

DRUGS (5)
  1. ANDANTE [Concomitant]
     Active Substance: BUNAZOSIN HYDROCHLORIDE
     Indication: OSTEOPOROSIS
     Route: 048
     Dates: start: 19950313
  2. RAMIPRIL. [Concomitant]
     Active Substance: RAMIPRIL
     Indication: HYPERTENSION
     Route: 048
     Dates: start: 19980313
  3. INFLIXIMAB [Suspect]
     Active Substance: INFLIXIMAB
     Indication: PRODUCT USED FOR UNKNOWN INDICATION
     Dosage: 5-10 MG EVERY 6-8 WEEKS
     Route: 065
     Dates: start: 200812, end: 201103
  4. HUMIRA [Suspect]
     Active Substance: ADALIMUMAB
     Indication: ANKYLOSING SPONDYLITIS
     Route: 058
     Dates: start: 20110826, end: 20130306
  5. ASPIRIN. [Concomitant]
     Active Substance: ASPIRIN
     Indication: HYPERTENSION

REACTIONS (3)
  - Fatigue [Fatal]
  - Adenocarcinoma pancreas [Fatal]
  - Skin exfoliation [Fatal]

NARRATIVE: CASE EVENT DATE: 201301
